FAERS Safety Report 4748868-3 (Version None)
Quarter: 2005Q3

REPORT INFORMATION
  Report Type: 
  Country: None (occurrence: None)
  Receive Date: 20050819
  Receipt Date: 20050811
  Transmission Date: 20060218
  Serious: Yes (Death, Other)
  Sender: FDA-Public Use
  Company Number: PH-GLAXOSMITHKLINE-B0390851A

PATIENT
  Age: 5 Month
  Sex: Female

DRUGS (1)
  1. FORTUM [Suspect]
     Indication: SEPTIC SHOCK
     Route: 065

REACTIONS (5)
  - CHILLS [None]
  - CONVULSION [None]
  - DEATH [None]
  - ILL-DEFINED DISORDER [None]
  - RASH MACULAR [None]
